FAERS Safety Report 4692107-9 (Version None)
Quarter: 2005Q2

REPORT INFORMATION
  Report Type: 
  Country: None (occurrence: None)
  Receive Date: 20050614
  Receipt Date: 20050601
  Transmission Date: 20051028
  Serious: Yes (Hospitalization, Other)
  Sender: FDA-Public Use
  Company Number: 2005085393

PATIENT
  Age: 54 Year
  Sex: Male

DRUGS (1)
  1. BEXTRA [Suspect]
     Indication: NECK INJURY
     Dosage: 20 MG (20 MG 1 IN 1D) ORAL
     Route: 048
     Dates: start: 20040101

REACTIONS (5)
  - ABDOMINAL PAIN UPPER [None]
  - ASTHENIA [None]
  - HAEMATOCHEZIA [None]
  - RASH ERYTHEMATOUS [None]
  - RASH PRURITIC [None]
